FAERS Safety Report 16939321 (Version 2)
Quarter: 2020Q1

REPORT INFORMATION
  Report Type: Spontaneous
  Country: CH (occurrence: CH)
  Receive Date: 20191021
  Receipt Date: 20200131
  Transmission Date: 20200409
  Serious: Yes (Hospitalization, Other)
  Sender: FDA-Public Use
  Company Number: CH-TEVA-2019-CH-1069421

PATIENT
  Sex: Male

DRUGS (10)
  1. FLUOROURACIL-TEVA [Suspect]
     Active Substance: FLUOROURACIL
     Dosage: STARTED 700+4300MG IN COMBINATION WITH CALCIUMFOLINAT.
     Route: 065
     Dates: start: 20190625
  2. OXALIPLATIN. [Suspect]
     Active Substance: OXALIPLATIN
     Dosage: 150 MG/ADMINISTRATION
     Route: 065
  3. FLUOROURACIL-TEVA [Suspect]
     Active Substance: FLUOROURACIL
     Dosage: 5G/ADMINISTRATION
     Route: 065
  4. FLUOROURACIL-TEVA [Suspect]
     Active Substance: FLUOROURACIL
     Dosage: 700+4300MG IN COMBINATION WITH CALCIUMFOLINAT.
     Route: 065
     Dates: start: 20190716
  5. CALCIUMFOLINATE [Suspect]
     Active Substance: LEUCOVORIN
     Dosage: 700MG/ ADMINISTRATION
     Route: 065
  6. CALCIUMFOLINATE [Suspect]
     Active Substance: LEUCOVORIN
     Dosage: STARTED 700+4300MG IN COMBINATION WITH FLUOROURACIL.
     Route: 065
     Dates: start: 20190625
  7. OXALIPLATIN. [Suspect]
     Active Substance: OXALIPLATIN
     Dosage: DOSED 130MG/M2 ON DAY 1
     Route: 065
     Dates: start: 20180426, end: 20180920
  8. BEVACIZUMAB. [Suspect]
     Active Substance: BEVACIZUMAB
     Route: 065
  9. XELODA [Suspect]
     Active Substance: CAPECITABINE
     Dosage: 2G/M2 ON DAYS 1 TO 14 AND REPEATED ON DAY 22, WITH A TOTAL OF 8 CYCLES
     Route: 065
  10. CALCIUMFOLINATE [Suspect]
     Active Substance: LEUCOVORIN
     Dosage: 700+4300MG IN COMBINATION WITH FLUOROURACIL.
     Route: 065
     Dates: start: 20190716

REACTIONS (5)
  - Small intestinal obstruction [Recovered/Resolved]
  - Ileus [Recovered/Resolved]
  - Small intestine carcinoma metastatic [Recovered/Resolved]
  - Lymphadenopathy [Unknown]
  - Off label use [Unknown]
